FAERS Safety Report 6045888-6 (Version None)
Quarter: 2009Q1

REPORT INFORMATION
  Report Type: 
  Country: None (occurrence: None)
  Receive Date: 20090121
  Receipt Date: 20090113
  Transmission Date: 20090719
  Serious: No
  Sender: FDA-Public Use
  Company Number: US-B.I. PHARMACEUTICALS,INC./RIDGEFIELD-2008-BP-17645BP

PATIENT
  Sex: Female

DRUGS (4)
  1. CATAPRES-TTS-1 [Suspect]
     Indication: HYPERTENSION
     Dosage: .1MG
     Route: 061
     Dates: start: 20081015, end: 20081119
  2. CATAPRES-TTS-1 [Suspect]
     Indication: WITHDRAWAL SYNDROME
     Dosage: .2MG
     Route: 061
     Dates: start: 20081119
  3. TOPROL-XL [Concomitant]
     Indication: HYPERTENSION
  4. AZITHROMYCIN [Concomitant]
     Indication: NASOPHARYNGITIS

REACTIONS (12)
  - APPLICATION SITE PRURITUS [None]
  - APPLICATION SITE RASH [None]
  - APPLICATION SITE SWELLING [None]
  - BLOOD PRESSURE INCREASED [None]
  - DECREASED APPETITE [None]
  - DIZZINESS [None]
  - DRY MOUTH [None]
  - GENERAL PHYSICAL CONDITION ABNORMAL [None]
  - LARYNGITIS [None]
  - OROPHARYNGEAL PAIN [None]
  - POLLAKIURIA [None]
  - TREMOR [None]
